FAERS Safety Report 6444635-3 (Version None)
Quarter: 2009Q4

REPORT INFORMATION
  Report Type: 
  Country: None (occurrence: None)
  Receive Date: 20091110
  Receipt Date: 20091006
  Transmission Date: 20100525
  Serious: No
  Sender: FDA-Public Use
  Company Number: 1000009187

PATIENT
  Age: 59 Year
  Sex: Female

DRUGS (14)
  1. SAVELLA [Suspect]
     Indication: FIBROMYALGIA
     Dosage: SEE IMAGE
     Route: 048
     Dates: start: 20090924, end: 20090924
  2. SAVELLA [Suspect]
     Indication: FIBROMYALGIA
     Dosage: SEE IMAGE
     Route: 048
     Dates: start: 20090925, end: 20090926
  3. SAVELLA [Suspect]
     Indication: FIBROMYALGIA
     Dosage: SEE IMAGE
     Route: 048
     Dates: start: 20090927, end: 20090930
  4. SAVELLA [Suspect]
     Indication: FIBROMYALGIA
     Dosage: SEE IMAGE
     Route: 048
     Dates: start: 20091001
  5. MICROZIDE [Concomitant]
  6. RECLAST [Concomitant]
  7. SIMVASTATIN [Concomitant]
  8. ZETIA [Concomitant]
  9. ESTROGEL [Concomitant]
  10. RESTORIL [Concomitant]
  11. OMNARIS SPRAY [Concomitant]
  12. CELEXA [Concomitant]
  13. SYNTHROID [Concomitant]
  14. VITAMINS [Concomitant]

REACTIONS (5)
  - CHILLS [None]
  - HEADACHE [None]
  - HOT FLUSH [None]
  - HYPERHIDROSIS [None]
  - SLEEP DISORDER [None]
